FAERS Safety Report 4833071-9 (Version None)
Quarter: 2005Q4

REPORT INFORMATION
  Report Type: 
  Country: None (occurrence: None)
  Receive Date: 20051121
  Receipt Date: 20050419
  Transmission Date: 20060501
  Serious: Yes (Other)
  Sender: FDA-Public Use
  Company Number: JP-ROCHE-419034

PATIENT
  Age: 58 Year
  Sex: Female

DRUGS (4)
  1. PEG-INTERFERON A-2A (RO 25-8310) [Suspect]
     Indication: HEPATITIS C
     Route: 058
     Dates: start: 20040811, end: 20050119
  2. LOXONIN [Concomitant]
     Route: 048
     Dates: start: 20040811
  3. MUCOSTA [Concomitant]
     Route: 048
     Dates: start: 20040811
  4. ISODINE [Concomitant]
     Dosage: GARGLE.
     Route: 048
     Dates: start: 20040820, end: 20040825

REACTIONS (8)
  - ARTHRALGIA [None]
  - DIARRHOEA [None]
  - GASTRIC ULCER [None]
  - GINGIVAL BLEEDING [None]
  - HEADACHE [None]
  - LEUKOENCEPHALOMYELITIS [None]
  - MALAISE [None]
  - STOMATITIS [None]
